FAERS Safety Report 7922128 (Version 3)
Quarter: 2013Q2

REPORT INFORMATION
  Report Type: Spontaneous
  Country: US (occurrence: US)
  Receive Date: 20110429
  Receipt Date: 20130604
  Transmission Date: 20140414
  Serious: No
  Sender: FDA-Public Use
  Company Number: US-ASTRAZENECA-2010SE60930

PATIENT
  Age: 39 Year
  Sex: Female

DRUGS (1)
  1. NEXIUM [Suspect]
     Route: 048

REACTIONS (8)
  - Gastrooesophageal reflux disease [Unknown]
  - Bronchitis [Unknown]
  - Nasopharyngitis [Unknown]
  - Ingrowing nail [Unknown]
  - Pneumonia [Unknown]
  - Abdominal discomfort [Unknown]
  - Malaise [Unknown]
  - Intentional drug misuse [Unknown]
